FAERS Safety Report 18882340 (Version 1)
Quarter: 2021Q1

REPORT INFORMATION
  Report Type: Report from Study
  Country: US (occurrence: US)
  Receive Date: 20210212
  Receipt Date: 20210212
  Transmission Date: 20210420
  Serious: No
  Sender: FDA-Public Use
  Company Number: US-IPSEN BIOPHARMACEUTICALS, INC.-2021-03306

PATIENT
  Age: 13 Year
  Weight: 65.7 kg

DRUGS (2)
  1. DYSPORT [Suspect]
     Active Substance: ABOBOTULINUMTOXINA
     Indication: MUSCLE SPASTICITY
     Dosage: 50IU: FINGER FLEXORS 15 IU, WRIST FLEXOR 15 IU AND LOWER LIMB DISTAL MUSCLES 20 IU
     Route: 030
  2. DYSPORT [Suspect]
     Active Substance: ABOBOTULINUMTOXINA
     Indication: MUSCLE SPASTICITY

REACTIONS (1)
  - Muscle spasticity [Unknown]
